FAERS Safety Report 4663355-9 (Version None)
Quarter: 2005Q2

REPORT INFORMATION
  Report Type: 
  Country: None (occurrence: None)
  Receive Date: 20050517
  Receipt Date: 20050509
  Transmission Date: 20051028
  Serious: Yes (Hospitalization)
  Sender: FDA-Public Use
  Company Number: US-JNJFOC-20050306406

PATIENT
  Sex: Female

DRUGS (6)
  1. DURAGESIC-100 [Suspect]
     Route: 062
  2. PERCOCET [Concomitant]
  3. PERCOCET [Concomitant]
  4. OXYCONTIN [Concomitant]
  5. ACIPHEX [Concomitant]
  6. REGLAN [Concomitant]

REACTIONS (2)
  - CONSTIPATION [None]
  - LIGAMENT SPRAIN [None]
